FAERS Safety Report 7688146-6 (Version None)
Quarter: 2011Q3

REPORT INFORMATION
  Report Type: 
  Country: None (occurrence: None)
  Receive Date: 20110817
  Receipt Date: 20110808
  Transmission Date: 20111222
  Serious: Yes (Other)
  Sender: FDA-Public Use
  Company Number: GB-SANOFI-AVENTIS-2011SA044719

PATIENT
  Age: 68 Year
  Sex: Female

DRUGS (3)
  1. VANCOMYCIN HYCHLORIDE [Interacting]
     Indication: WOUND INFECTION
     Route: 042
  2. FUROSEMIDE [Suspect]
     Route: 048
  3. FUROSEMIDE [Interacting]
     Route: 065

REACTIONS (3)
  - CARDIAC ARREST [None]
  - HYPOKALAEMIA [None]
  - DRUG INTERACTION [None]
